FAERS Safety Report 4641747-1 (Version None)
Quarter: 2005Q2

REPORT INFORMATION
  Report Type: 
  Country: None (occurrence: None)
  Receive Date: 20050420
  Receipt Date: 20050406
  Transmission Date: 20051028
  Serious: Yes (Hospitalization)
  Sender: FDA-Public Use
  Company Number: MK200503-0118-2

PATIENT
  Age: 65 Year
  Sex: Female

DRUGS (10)
  1. ANAFRANIL [Suspect]
     Indication: DEPRESSION
     Dosage: 75 MG QD, PO
     Route: 048
     Dates: start: 20050104, end: 20050125
  2. FERO-GRADUMET [Concomitant]
  3. LIMETHASONE [Concomitant]
  4. LOXONIN [Concomitant]
  5. LUDIOMIL [Concomitant]
  6. PREDNISOLONE [Concomitant]
  7. RIDAURA [Concomitant]
  8. ROCALTROL [Concomitant]
  9. SELBEX [Concomitant]
  10. LORAZEPAM [Concomitant]

REACTIONS (7)
  - BLOOD CHLORIDE DECREASED [None]
  - BLOOD URIC ACID DECREASED [None]
  - CHILLS [None]
  - DIZZINESS [None]
  - INAPPROPRIATE ANTIDIURETIC HORMONE SECRETION [None]
  - MENTAL IMPAIRMENT [None]
  - TREMOR [None]
